FAERS Safety Report 6452854-5 (Version None)
Quarter: 2009Q4

REPORT INFORMATION
  Report Type: 
  Country: None (occurrence: None)
  Receive Date: 20091124
  Receipt Date: 20090507
  Transmission Date: 20100525
  Serious: No
  Sender: FDA-Public Use
  Company Number: US-ABBOTT-09P-163-0570676-00

PATIENT
  Sex: Male
  Weight: 86.714 kg

DRUGS (1)
  1. TRICOR [Suspect]
     Indication: BLOOD TRIGLYCERIDES INCREASED
     Route: 048
     Dates: start: 20081023, end: 20090424

REACTIONS (5)
  - DRY EYE [None]
  - EXOPHTHALMOS [None]
  - INITIAL INSOMNIA [None]
  - OCULAR DISCOMFORT [None]
  - VISION BLURRED [None]
